FAERS Safety Report 5883241-6 (Version None)
Quarter: 2008Q3

REPORT INFORMATION
  Report Type: 
  Country: None (occurrence: None)
  Receive Date: 20080915
  Receipt Date: 20080912
  Transmission Date: 20090109
  Serious: Yes (Life-Threatening, Hospitalization, Other)
  Sender: FDA-Public Use
  Company Number: DE-JNJFOC-20071201212

PATIENT
  Sex: Male

DRUGS (2)
  1. ITRACONAZOLE [Suspect]
     Route: 048
  2. ITRACONAZOLE [Suspect]
     Indication: ONYCHOMYCOSIS
     Route: 048

REACTIONS (8)
  - ATELECTASIS [None]
  - BLOOD GLUCOSE INCREASED [None]
  - BLOOD POTASSIUM INCREASED [None]
  - LYMPHADENOPATHY [None]
  - MYOCARDITIS [None]
  - NASOPHARYNGITIS [None]
  - PULMONARY ARTERY THROMBOSIS [None]
  - WEIGHT DECREASED [None]
